FAERS Safety Report 20783986 (Version 1)
Quarter: 2022Q2

REPORT INFORMATION
  Report Type: Spontaneous
  Country: US (occurrence: US)
  Receive Date: 20220504
  Receipt Date: 20220504
  Transmission Date: 20220720
  Serious: No
  Sender: FDA-Public Use
  Company Number: US-ANIPHARMA-2021-US-010476

PATIENT
  Age: 74 Year
  Sex: Female
  Weight: 79.38 kg

DRUGS (5)
  1. ATACAND HCT [Suspect]
     Active Substance: CANDESARTAN CILEXETIL\HYDROCHLOROTHIAZIDE
     Indication: Hypertension
     Dosage: ONE-HALF TABLET TWICE DAILY / ONE-FOURTH TABLET TWICE DAILY / ONE-FOURTH TABLET ONCE DAILY
     Route: 048
     Dates: start: 202012, end: 202102
  2. CRESTOR [Concomitant]
     Active Substance: ROSUVASTATIN CALCIUM
     Route: 065
  3. ASPIRIN [Concomitant]
     Active Substance: ASPIRIN
     Route: 065
  4. VITAMINS [Concomitant]
     Active Substance: VITAMINS
     Route: 065
  5. VESICARE [Concomitant]
     Active Substance: SOLIFENACIN SUCCINATE
     Route: 065

REACTIONS (4)
  - Dizziness [Not Recovered/Not Resolved]
  - Heart rate abnormal [Not Recovered/Not Resolved]
  - Lethargy [Not Recovered/Not Resolved]
  - Blood pressure fluctuation [Not Recovered/Not Resolved]

NARRATIVE: CASE EVENT DATE: 20201201
